FAERS Safety Report 6128261-1 (Version None)
Quarter: 2009Q1

REPORT INFORMATION
  Report Type: 
  Country: None (occurrence: None)
  Receive Date: 20090319
  Receipt Date: 20090313
  Transmission Date: 20090719
  Serious: Yes (Life-Threatening, Hospitalization, Other)
  Sender: FDA-Public Use
  Company Number: OMPQ-UK-0903S-0160

PATIENT
  Sex: Female
  Weight: 95 kg

DRUGS (13)
  1. OMNIPAQUE 300 [Suspect]
     Indication: ARTERIOGRAM CORONARY
     Dosage: SINGLE DOSE, I.V.
     Route: 042
  2. ASPIRIN [Concomitant]
  3. CARVEDILOL [Concomitant]
  4. CLOPIDOGREL [Concomitant]
  5. FUROSEMIDE (FRUSEMIDE) [Concomitant]
  6. IRBESARTAN [Concomitant]
  7. LATANOPROST [Concomitant]
  8. OMEPRAZOLE [Concomitant]
  9. PARACETAMOL [Concomitant]
  10. QUININE SULPHATE (QUININE) [Concomitant]
  11. SIMVASTATIN [Concomitant]
  12. DORZOLAMIDE HYDROCHLORIDE (TRUSOPT) [Concomitant]
  13. CARBOMER (VISCOTEARS) [Concomitant]

REACTIONS (2)
  - ACUTE GENERALISED EXANTHEMATOUS PUSTULOSIS [None]
  - RASH PUSTULAR [None]
